FAERS Safety Report 19052791 (Version 4)
Quarter: 2022Q1

REPORT INFORMATION
  Report Type: Report from Study
  Country: US (occurrence: None)
  Receive Date: 20210324
  Receipt Date: 20220210
  Transmission Date: 20220424
  Serious: Yes (Hospitalization)
  Sender: FDA-Public Use
  Company Number: US-ROCHE-2726600

PATIENT
  Age: 79 Year
  Sex: Male
  Weight: 58.7 kg

DRUGS (12)
  1. ATEZOLIZUMAB [Suspect]
     Active Substance: ATEZOLIZUMAB
     Indication: Non-small cell lung cancer
     Dosage: ON 20/OCT/2020, HE RECEIVED THE MOST RECENT DOSE OF ATEZOLIZUMAB PRIOR TO ONSET OF CHOLECYSTITIS ON
     Route: 042
     Dates: start: 20191209
  2. CABOZANTINIB [Suspect]
     Active Substance: CABOZANTINIB
     Indication: Non-small cell lung cancer
     Dosage: ON 06/NOV/2020, HE RECEIVED THE MOST RECENT DOSE OF CABOZANTINIB PRIOR TO ONSET OF CHOLECYSTITIS ON
     Route: 048
     Dates: start: 20191209
  3. CABOZANTINIB [Suspect]
     Active Substance: CABOZANTINIB
     Route: 048
     Dates: end: 20201107
  4. CABOZANTINIB [Suspect]
     Active Substance: CABOZANTINIB
     Route: 048
     Dates: start: 20201110, end: 20201231
  5. CABOZANTINIB [Suspect]
     Active Substance: CABOZANTINIB
     Route: 048
     Dates: start: 20210209
  6. ASPIRIN [Concomitant]
     Active Substance: ASPIRIN
  7. BACLOFEN [Concomitant]
     Active Substance: BACLOFEN
  8. BETAMETHASONE DIPROPIONATE [Concomitant]
     Active Substance: BETAMETHASONE DIPROPIONATE
  9. BISACODYL [Concomitant]
     Active Substance: BISACODYL
  10. ACETAMINOPHEN\HYDROCODONE [Concomitant]
     Active Substance: ACETAMINOPHEN\HYDROCODONE
  11. PREGABALIN [Concomitant]
     Active Substance: PREGABALIN
  12. SENNA [Concomitant]
     Active Substance: SENNA LEAF\SENNOSIDES\SENNOSIDES A AND B

REACTIONS (3)
  - Gallbladder enlargement [Recovered/Resolved]
  - Biliary tract disorder [Recovered/Resolved]
  - Drug-induced liver injury [Recovered/Resolved]

NARRATIVE: CASE EVENT DATE: 20201106
